FAERS Safety Report 9210197 (Version 2)
Quarter: 2013Q2

REPORT INFORMATION
  Report Type: Spontaneous
  Country: GB (occurrence: GB)
  Receive Date: 20130404
  Receipt Date: 20130404
  Transmission Date: 20140414
  Serious: Yes (Hospitalization)
  Sender: FDA-Public Use
  Company Number: GB-PFIZER INC-HQ8674618JUL2000

PATIENT
  Age: 29 Year
  Sex: Male
  Weight: 89.6 kg

DRUGS (4)
  1. IBUPROFEN [Suspect]
     Indication: PAIN IN EXTREMITY
     Dosage: 200 MG, UNK
     Route: 048
     Dates: start: 199411, end: 199504
  2. IBUPROFEN [Interacting]
     Dosage: 400 MG, UNK
     Route: 048
     Dates: start: 199504, end: 19950429
  3. MODALIM [Interacting]
     Indication: HYPERCHOLESTEROLAEMIA
     Dosage: 100 MG, 1X/DAY
     Route: 048
  4. MODALIM [Interacting]
     Indication: TYPE III HYPERLIPIDAEMIA
     Dosage: 200 MG, 1X/DAY
     Route: 048
     Dates: start: 199504, end: 19950429

REACTIONS (4)
  - Drug interaction [Recovered/Resolved]
  - Renal failure acute [Recovered/Resolved]
  - Rhabdomyolysis [Recovered/Resolved]
  - Toxicity to various agents [Recovered/Resolved]
